FAERS Safety Report 5754052-7 (Version None)
Quarter: 2008Q2

REPORT INFORMATION
  Report Type: 
  Country: None (occurrence: None)
  Receive Date: 20080530
  Receipt Date: 20080521
  Transmission Date: 20081010
  Serious: Yes (Death)
  Sender: FDA-Public Use
  Company Number: PHHY2008JP05001

PATIENT
  Sex: Female
  Weight: 51 kg

DRUGS (12)
  1. FEMARA [Suspect]
     Indication: BREAST CANCER
     Dosage: 2.5 MG DAILY
     Route: 048
     Dates: start: 20070203, end: 20070212
  2. XELODA [Concomitant]
     Dosage: 6 DF
     Route: 048
     Dates: start: 20060628, end: 20070129
  3. LASIX [Concomitant]
     Indication: BREAST CANCER
     Dosage: 20 MG
     Route: 048
     Dates: start: 20070208, end: 20070214
  4. TETRAMIDE [Concomitant]
     Indication: RENAL IMPAIRMENT
     Dosage: 30 MG
     Route: 048
     Dates: start: 20050101
  5. MYSLEE [Concomitant]
     Indication: RENAL IMPAIRMENT
     Dosage: 5 MG
     Route: 048
     Dates: start: 20050101
  6. LEVOTOMIN [Concomitant]
     Indication: RENAL IMPAIRMENT
     Dosage: 5 MG
     Route: 048
     Dates: start: 20050101
  7. NAPROXEN [Concomitant]
     Indication: BREAST CANCER
     Dosage: 3 DF
     Route: 048
     Dates: start: 20070208, end: 20070211
  8. OXYCONTIN [Concomitant]
     Indication: BREAST CANCER
     Dosage: 20 MG
     Route: 048
     Dates: start: 20070210, end: 20070214
  9. PURSENNID                               /SCH/ [Concomitant]
     Indication: BREAST CANCER
     Dosage: 24 MG
     Route: 048
     Dates: start: 20070210, end: 20070214
  10. ALDACTONE [Concomitant]
     Indication: BREAST CANCER
     Dosage: 25 MG
     Route: 048
     Dates: start: 20070211, end: 20070405
  11. CODEINE SUL TAB [Concomitant]
     Indication: BREAST CANCER
     Dosage: 60 MG
     Route: 048
     Dates: start: 20070212, end: 20070217
  12. RINDERON [Concomitant]
     Indication: BREAST CANCER
     Dosage: 1 MG
     Route: 048

REACTIONS (7)
  - ALANINE AMINOTRANSFERASE INCREASED [None]
  - ASCITES [None]
  - ASPARTATE AMINOTRANSFERASE INCREASED [None]
  - BLOOD BILIRUBIN INCREASED [None]
  - BLOOD UREA INCREASED [None]
  - HEPATIC FAILURE [None]
  - JAUNDICE [None]
